FAERS Safety Report 5254630-8 (Version None)
Quarter: 2007Q1

REPORT INFORMATION
  Report Type: 
  Country: None (occurrence: None)
  Receive Date: 20070302
  Receipt Date: 20070221
  Transmission Date: 20070707
  Serious: Yes (Other)
  Sender: FDA-Public Use
  Company Number: DE-PFIZER INC-2007014692

PATIENT

DRUGS (1)
  1. CAMPTOSAR [Suspect]
     Route: 042

REACTIONS (1)
  - LONG QT SYNDROME [None]
